FAERS Safety Report 6788732-1 (Version None)
Quarter: 2010Q2

REPORT INFORMATION
  Report Type: 
  Country: None (occurrence: None)
  Receive Date: 20100623
  Receipt Date: 20080605
  Transmission Date: 20101027
  Serious: No
  Sender: FDA-Public Use
  Company Number: US-PFIZER INC-2008041863

PATIENT
  Age: 84 Year
  Sex: Male

DRUGS (9)
  1. NIFEDIPINE [Suspect]
     Indication: HYPERTENSION
     Route: 048
     Dates: start: 20080125
  2. WARFARIN SODIUM [Concomitant]
  3. ALLOPURINOL [Concomitant]
  4. LISINOPRIL [Concomitant]
  5. FUROSEMIDE [Concomitant]
  6. OMEPRAZOLE [Concomitant]
  7. VITACAL [Concomitant]
  8. TRUSOPT [Concomitant]
  9. PILOCARPINE NITRATE [Concomitant]

REACTIONS (2)
  - NEUROPATHY PERIPHERAL [None]
  - OEDEMA PERIPHERAL [None]
